FAERS Safety Report 17150459 (Version 1)
Quarter: 2019Q4

REPORT INFORMATION
  Report Type: Spontaneous
  Country: US (occurrence: US)
  Receive Date: 20191120
  Receipt Date: 20191120
  Transmission Date: 20200122
  Serious: Yes (Other)
  Sender: FDA-Public Use
  Company Number: None

PATIENT
  Age: 71 Year
  Sex: Female
  Weight: 73.48 kg

DRUGS (2)
  1. ESTRADIOL. [Concomitant]
     Active Substance: ESTRADIOL
  2. CIPROFLOXACIN (FLOUROQUINOLONE) SUBSTITUTED FOR CIPRO OVAL WHITE TABLE [Suspect]
     Active Substance: CIPROFLOXACIN
     Indication: URINARY TRACT INFECTION
     Dosage: ?          QUANTITY:1 TABLET;?
     Route: 048
     Dates: start: 20191029, end: 20191031

REACTIONS (3)
  - Urticaria [None]
  - Tendon pain [None]
  - Rash [None]

NARRATIVE: CASE EVENT DATE: 20191029
